FAERS Safety Report 6335857-0 (Version None)
Quarter: 2009Q3

REPORT INFORMATION
  Report Type: 
  Country: None (occurrence: None)
  Receive Date: 20090828
  Receipt Date: 20090818
  Transmission Date: 20100115
  Serious: Yes (Life-Threatening, Hospitalization, Other)
  Sender: FDA-Public Use
  Company Number: MC200900231

PATIENT
  Age: 84 Year
  Sex: Female

DRUGS (15)
  1. ANGIOMAX [Suspect]
     Indication: ANGIOPLASTY
     Dosage: 42 MG, SINGLE (BOLUS) AT 09:21, INTRAVENOUS, 96 MG, HR (INFUSION) AT 09:22, INTRAVENOUS
     Route: 042
  2. ANGIOMAX [Suspect]
     Indication: PERCUTANEOUS CORONARY INTERVENTION
     Dosage: 42 MG, SINGLE (BOLUS) AT 09:21, INTRAVENOUS, 96 MG, HR (INFUSION) AT 09:22, INTRAVENOUS
     Route: 042
  3. XYLOCAINE [Concomitant]
  4. NITROGLYCERIN [Concomitant]
  5. ATROPINE [Concomitant]
  6. DOPAMINE HCL [Concomitant]
  7. MAXERAN (METOCLOPRAMIDE HYDROCHLORIDE) [Concomitant]
  8. EPINEPHRINE [Concomitant]
  9. ASPIRIN [Concomitant]
  10. PLAVIX [Concomitant]
  11. PRAVASTATIN [Concomitant]
  12. RAMIPRIL [Concomitant]
  13. BETA BLOCKER [Concomitant]
  14. CALCIUM CHANNEL BLOCKERS [Concomitant]
  15. HYDROCHLOROTHIAZIDE [Concomitant]

REACTIONS (7)
  - BRADYCARDIA [None]
  - CARDIAC PROCEDURE COMPLICATION [None]
  - CARDIAC TAMPONADE [None]
  - CORONARY ARTERY PERFORATION [None]
  - HYPOTENSION [None]
  - POST PROCEDURAL HAEMORRHAGE [None]
  - THROMBOSIS [None]
